FAERS Safety Report 5483659-X (Version None)
Quarter: 2007Q4

REPORT INFORMATION
  Report Type: 
  Country: None (occurrence: None)
  Receive Date: 20071012
  Receipt Date: 20071005
  Transmission Date: 20080405
  Serious: Yes (Other)
  Sender: FDA-Public Use
  Company Number: US-ELI_LILLY_AND_COMPANY-US200710002492

PATIENT
  Age: 7 Year
  Sex: Female

DRUGS (3)
  1. HUMATROPE [Suspect]
     Indication: GROWTH HORMONE DEFICIENCY
     Dosage: 0.3 MG/KG, WEEKLY (1/W)
  2. HUMATROPE [Suspect]
     Dosage: 0.15 MG/KG, WEEKLY (1/W)
  3. HUMATROPE [Suspect]
     Dosage: 0.3 MG/KG, WEEKLY (1/W)

REACTIONS (1)
  - THYMUS DISORDER [None]
